FAERS Safety Report 8732296 (Version 2)
Quarter: 2013Q3

REPORT INFORMATION
  Report Type: Spontaneous
  Country: US (occurrence: US)
  Receive Date: 20120820
  Receipt Date: 20130729
  Transmission Date: 20140515
  Serious: Yes (Congenital Anomaly)
  Sender: FDA-Public Use
  Company Number: US-GLAXOSMITHKLINE-A0987782A

PATIENT
  Age: 0 Day
  Sex: Female
  Weight: 3.5 kg

DRUGS (1)
  1. PAXIL [Suspect]
     Indication: PRODUCT USED FOR UNKNOWN INDICATION
     Route: 064
     Dates: start: 200208, end: 200301

REACTIONS (5)
  - Congenital anomaly [Unknown]
  - Cleft palate [Unknown]
  - Failure to thrive [Unknown]
  - Pierre Robin syndrome [Unknown]
  - Foetal exposure during pregnancy [Unknown]
